FAERS Safety Report 12355651 (Version 2)
Quarter: 2016Q2

REPORT INFORMATION
  Report Type: Spontaneous
  Country: PT (occurrence: PT)
  Receive Date: 20160511
  Receipt Date: 20160518
  Transmission Date: 20160815
  Serious: Yes (Hospitalization)
  Sender: FDA-Public Use
  Company Number: PT-ABBVIE-16P-130-1624366-00

PATIENT
  Age: 65 Year
  Sex: Female

DRUGS (2)
  1. DUODOPA [Suspect]
     Active Substance: CARBIDOPA\LEVODOPA
     Indication: PARKINSON^S DISEASE
  2. DUODOPA [Suspect]
     Active Substance: CARBIDOPA\LEVODOPA
     Indication: NEUROGENIC BLADDER
     Route: 050

REACTIONS (20)
  - Neck pain [Recovering/Resolving]
  - Postural reflex impairment [Recovering/Resolving]
  - Multiple system atrophy [Recovering/Resolving]
  - Orthostatic hypotension [Recovering/Resolving]
  - Headache [Recovering/Resolving]
  - Balance disorder [Recovering/Resolving]
  - Akinesia [Recovering/Resolving]
  - Dysphonia [Recovering/Resolving]
  - Sleep apnoea syndrome [Recovering/Resolving]
  - Drug ineffective [Recovering/Resolving]
  - Myoclonus [Recovering/Resolving]
  - Appendix disorder [Recovering/Resolving]
  - Nuclear magnetic resonance imaging brain abnormal [Recovering/Resolving]
  - Horner^s syndrome [Recovering/Resolving]
  - Freezing phenomenon [Recovering/Resolving]
  - Gait disturbance [Recovering/Resolving]
  - Dysarthria [Recovering/Resolving]
  - Eyelid ptosis [Recovering/Resolving]
  - Torticollis [Recovering/Resolving]
  - Autonomic nervous system imbalance [Recovering/Resolving]
